FAERS Safety Report 11174823 (Version 1)
Quarter: 2015Q2

REPORT INFORMATION
  Report Type: Spontaneous
  Country: US (occurrence: None)
  Receive Date: 20150608
  Receipt Date: 20150608
  Transmission Date: 20150821
  Serious: Yes (Hospitalization)
  Sender: FDA-Public Use
  Company Number: None

PATIENT
  Age: 55 Year
  Sex: Male
  Weight: 64.8 kg

DRUGS (1)
  1. ERBITUX [Suspect]
     Active Substance: CETUXIMAB
     Dates: end: 20150604

REACTIONS (5)
  - Hypersensitivity [None]
  - Nausea [None]
  - Vomiting [None]
  - Urinary incontinence [None]
  - Cough [None]

NARRATIVE: CASE EVENT DATE: 20150604
